FAERS Safety Report 20013885 (Version 1)
Quarter: 2021Q4

REPORT INFORMATION
  Report Type: Spontaneous
  Country: FR (occurrence: FR)
  Receive Date: 20211029
  Receipt Date: 20211029
  Transmission Date: 20220303
  Serious: Yes (Hospitalization)
  Sender: FDA-Public Use
  Company Number: None

PATIENT
  Age: 58 Year
  Sex: Female
  Weight: 61.8 kg

DRUGS (7)
  1. PREDNISOLONE [Suspect]
     Active Substance: PREDNISOLONE
     Indication: Infection
     Dosage: 1 DOSAGE FORM, QD
     Dates: start: 20210601, end: 20210607
  2. AMOXICILLIN [Suspect]
     Active Substance: AMOXICILLIN
     Indication: Pneumonia
     Dosage: 3 GRAM, QD
     Dates: start: 20210525, end: 20210601
  3. FORMOTEROL [Suspect]
     Active Substance: FORMOTEROL
     Indication: Cough
     Dosage: 1 DOSAGE FORM, QD
     Dates: start: 20210601, end: 20210607
  4. MEQUITAZINE [Suspect]
     Active Substance: MEQUITAZINE
     Indication: Cough
     Dosage: UNK
     Dates: start: 20210601, end: 20210607
  5. PERINDOPRIL [Suspect]
     Active Substance: PERINDOPRIL
     Indication: Hypertension
     Dosage: UNK
     Dates: end: 20210607
  6. PHOLCODINE [Suspect]
     Active Substance: PHOLCODINE
     Indication: Cough
     Dosage: UNK
     Dates: start: 20210601, end: 20210607
  7. CIPROFLOXACIN [Suspect]
     Active Substance: CIPROFLOXACIN
     Indication: Pneumonia
     Dosage: 2 DOSAGE FORM, QD
     Dates: start: 20210601, end: 20210607

REACTIONS (1)
  - Tubulointerstitial nephritis and uveitis syndrome [Recovering/Resolving]

NARRATIVE: CASE EVENT DATE: 20210601
